FAERS Safety Report 5089261-6 (Version None)
Quarter: 2006Q3

REPORT INFORMATION
  Report Type: 
  Country: None (occurrence: None)
  Receive Date: 20060727
  Receipt Date: 20060530
  Transmission Date: 20061208
  Serious: Yes (Other)
  Sender: FDA-Public Use
  Company Number: 2006071497

PATIENT
  Age: 71 Year
  Sex: Female

DRUGS (6)
  1. LYRICA [Suspect]
     Indication: DRUG USE FOR UNKNOWN INDICATION
     Dosage: (75 MG, UNKOWN)
  2. HYDROCHLOROTHIAZIDE [Concomitant]
  3. POTASSIUM (POTASSIUM) [Concomitant]
  4. COZAAR [Concomitant]
  5. PREVACID [Concomitant]
  6. PROTONIX [Concomitant]

REACTIONS (2)
  - BLOOD PRESSURE INCREASED [None]
  - DRY MOUTH [None]
